FAERS Safety Report 9506220 (Version 1)
Quarter: 2013Q1

REPORT INFORMATION
  Report Type: Spontaneous
  Country: US (occurrence: None)
  Receive Date: 20130305
  Receipt Date: 20130305
  Transmission Date: 20140127
  Serious: Yes (Other)
  Sender: FDA-Public Use
  Company Number: 163-21880-11021565

PATIENT
  Age: 64 Year
  Sex: Female
  Weight: 52.2 kg

DRUGS (11)
  1. REVLIMID [Suspect]
     Indication: PLASMA CELL MYELOMA
     Dosage: DAY 1-21 DAILY EVERY 28 DAYS
     Route: 048
     Dates: start: 20100902
  2. BACLOFEN [Concomitant]
  3. VITAMIN D [Concomitant]
  4. VITAMIN B12 [Concomitant]
  5. ASA [Concomitant]
  6. DEXAMETHASONE [Concomitant]
  7. DIOVAN [Concomitant]
  8. FOLIC ACID [Concomitant]
  9. LORAZEPAM [Concomitant]
  10. OXYCODONE [Concomitant]
  11. METHADONE [Concomitant]

REACTIONS (9)
  - Spinal compression fracture [None]
  - Body height decreased [None]
  - Muscle spasms [None]
  - Pain [None]
  - Abdominal distension [None]
  - Constipation [None]
  - Abdominal pain [None]
  - Muscle tightness [None]
  - Dyspnoea [None]
